FAERS Safety Report 5919749-4 (Version None)
Quarter: 2008Q4

REPORT INFORMATION
  Report Type: 
  Country: None (occurrence: None)
  Receive Date: 20081015
  Receipt Date: 20081002
  Transmission Date: 20090506
  Serious: Yes (Other)
  Sender: FDA-Public Use
  Company Number: US-PFIZER INC-2008076568

PATIENT
  Sex: Male
  Weight: 102.1 kg

DRUGS (7)
  1. CHANTIX [Suspect]
     Indication: SMOKING CESSATION THERAPY
     Dates: start: 20080801
  2. DEPAKOTE [Concomitant]
  3. SEROQUEL [Concomitant]
  4. INDERAL [Concomitant]
  5. LEXAPRO [Concomitant]
  6. KLONOPIN [Concomitant]
  7. LUMIGAN [Concomitant]

REACTIONS (6)
  - ANXIETY [None]
  - BIPOLAR DISORDER [None]
  - DEPRESSED MOOD [None]
  - INCORRECT DOSE ADMINISTERED [None]
  - MANIA [None]
  - MOOD SWINGS [None]
